FAERS Safety Report 10269130 (Version 1)
Quarter: 2014Q2

REPORT INFORMATION
  Report Type: Spontaneous
  Country: US (occurrence: US)
  Receive Date: 20140630
  Receipt Date: 20140630
  Transmission Date: 20141212
  Serious: No
  Sender: FDA-Public Use
  Company Number: US-GILEAD-2014-0107122

PATIENT
  Age: 70 Year
  Sex: Female

DRUGS (10)
  1. LETAIRIS [Suspect]
     Indication: PULMONARY HYPERTENSION
     Dosage: 10 MG, QD
     Route: 065
     Dates: start: 20140122
  2. ADCIRCA [Suspect]
     Indication: PRODUCT USED FOR UNKNOWN INDICATION
  3. KLOR-CON [Concomitant]
  4. FUROSEMIDE [Concomitant]
  5. DILTIAZEM CD [Concomitant]
  6. PRADAXA [Concomitant]
  7. DIGOXIN [Concomitant]
  8. RAMIPRIL [Concomitant]
  9. METOPROLOL SUCCINATE [Concomitant]
  10. TYLENOL                            /00020001/ [Concomitant]

REACTIONS (1)
  - Back pain [Unknown]
